FAERS Safety Report 8833138 (Version 1)
Quarter: 2012Q4

REPORT INFORMATION
  Report Type: 
  Country: CN (occurrence: CN)
  Receive Date: 20121010
  Receipt Date: 20121010
  Transmission Date: 20130627
  Serious: Yes (Hospitalization)
  Sender: FDA-Public Use
  Company Number: PHHY2012CN086619

PATIENT
  Age: 38 Year
  Sex: Female

DRUGS (2)
  1. THIAMAZOLE [Suspect]
     Indication: HYPERTHYROIDISM
     Dosage: 20 mg, QD
  2. PROPRANOLOL [Concomitant]
     Indication: HYPERTHYROIDISM
     Dosage: 10 mg, TID

REACTIONS (8)
  - Lung infection [Unknown]
  - Pyrexia [Unknown]
  - Hepatotoxicity [Recovered/Resolved]
  - Liver function test abnormal [Recovered/Resolved]
  - Blood bilirubin increased [Recovered/Resolved]
  - Agranulocytosis [Recovered/Resolved]
  - Tonsillar hypertrophy [Recovered/Resolved]
  - Oropharyngeal pain [Recovered/Resolved]
